FAERS Safety Report 6611583-5 (Version None)
Quarter: 2010Q1

REPORT INFORMATION
  Report Type: 
  Country: None (occurrence: None)
  Receive Date: 20100303
  Receipt Date: 20100303
  Transmission Date: 20100710
  Serious: Yes (Hospitalization)
  Sender: FDA-Public Use
  Company Number: PHHO2009RU13145

PATIENT
  Sex: Male
  Weight: 98 kg

DRUGS (6)
  1. ACZ885 ACZ+ [Suspect]
     Indication: GOUT
     Dosage: 50 MG, ONCE/SINGLE
     Route: 058
     Dates: start: 20090702
  2. ACZ885 ACZ+ [Suspect]
     Dosage: 50 MG, ONCE/SINGLE
  3. ACZ885 ACZ+ [Suspect]
     Dosage: 25 MG, ONCE/SINGLE
  4. ACZ885 ACZ+ [Suspect]
     Dosage: 25 MG, ONCE/SINGLE
  5. ALLOPURINOL [Concomitant]
     Dosage: UNK
  6. LOGIMAX [Concomitant]
     Indication: HYPERTENSION
     Dosage: UNK

REACTIONS (3)
  - EAR INFECTION [None]
  - MALAISE [None]
  - PNEUMONIA [None]
